FAERS Safety Report 21269826 (Version 1)
Quarter: 2022Q3

REPORT INFORMATION
  Report Type: Spontaneous
  Country: AR (occurrence: AR)
  Receive Date: 20220830
  Receipt Date: 20220830
  Transmission Date: 20221027
  Serious: Yes (Other)
  Sender: FDA-Public Use
  Company Number: AR-PFIZER INC-PV202200052779

PATIENT
  Age: 72 Year
  Sex: Female
  Weight: 52 kg

DRUGS (3)
  1. IBRANCE [Suspect]
     Active Substance: PALBOCICLIB
     Indication: Breast cancer metastatic
     Dosage: 125 MG, X 21 DAYS (EVERY 28 DAYS)
     Dates: start: 20201003
  2. LETROZOLE [Concomitant]
     Active Substance: LETROZOLE
     Dosage: 2.5 MG
     Dates: start: 202006
  3. ZOLEDRONIC ACID [Concomitant]
     Active Substance: ZOLEDRONIC ACID
     Dosage: 4 MG
     Dates: start: 202006

REACTIONS (14)
  - Pathological fracture [Unknown]
  - Pelvic fracture [Unknown]
  - Renal atrophy [Unknown]
  - Biliary dilatation [Unknown]
  - Neoplasm progression [Unknown]
  - Spinal osteoarthritis [Unknown]
  - Abdominal pain upper [Unknown]
  - Haemoglobin decreased [Unknown]
  - Blood triglycerides increased [Unknown]
  - Blood lactate dehydrogenase increased [Unknown]
  - Fibrosis [Unknown]
  - Lung opacity [Unknown]
  - Gastrointestinal wall thickening [Unknown]
  - Exostosis [Unknown]

NARRATIVE: CASE EVENT DATE: 20210208
